FAERS Safety Report 23924851 (Version 1)
Quarter: 2024Q2

REPORT INFORMATION
  Report Type: Spontaneous
  Country: US (occurrence: US)
  Receive Date: 20240531
  Receipt Date: 20240531
  Transmission Date: 20240716
  Serious: No
  Sender: FDA-Public Use
  Company Number: US-PFIZER INC-202400181822

PATIENT
  Age: 71 Year
  Sex: Female

DRUGS (1)
  1. XELJANZ XR [Suspect]
     Active Substance: TOFACITINIB CITRATE
     Dosage: 11 MG, DAILY
     Dates: start: 202403

REACTIONS (5)
  - Blood iron decreased [Unknown]
  - Musculoskeletal stiffness [Unknown]
  - Hepatic steatosis [Unknown]
  - Arthralgia [Unknown]
  - Drug ineffective [Unknown]
